FAERS Safety Report 4383263-0 (Version None)
Quarter: 2004Q2

REPORT INFORMATION
  Report Type: 
  Country: None (occurrence: None)
  Receive Date: 20040618
  Receipt Date: 20040603
  Transmission Date: 20050107
  Serious: Yes (Other)
  Sender: FDA-Public Use
  Company Number: 2004-0007141

PATIENT
  Age: 41 Year
  Sex: Male
  Weight: 62 kg

DRUGS (10)
  1. VIREAD [Suspect]
     Indication: HIV INFECTION
     Dates: start: 20031118, end: 20031203
  2. EPIVIR [Suspect]
     Dates: start: 20031118, end: 20031203
  3. KALETRA [Suspect]
     Dates: start: 20031118, end: 20031203
  4. BACTRIM DS [Suspect]
     Dates: start: 20031118, end: 20031203
  5. LOPEDIUM (LOPERAMIDE HYDROCHLORIDE) [Concomitant]
  6. METOCLOPRAMIDE [Concomitant]
  7. LORAZEPAM [Concomitant]
  8. GELOMYRTOL (MYRTOL) [Concomitant]
  9. PARACETAMOL (PARACETAMOL) [Concomitant]
  10. BALDRIPAPARN (BALDRIPARAN) (CAPSULE) [Concomitant]

REACTIONS (2)
  - ANAEMIA HAEMOLYTIC AUTOIMMUNE [None]
  - THROMBOCYTOPENIA [None]
